FAERS Safety Report 4854222-6 (Version None)
Quarter: 2005Q4

REPORT INFORMATION
  Report Type: 
  Country: None (occurrence: None)
  Receive Date: 20051213
  Receipt Date: 20051206
  Transmission Date: 20060501
  Serious: Yes (Hospitalization)
  Sender: FDA-Public Use
  Company Number: 200512329BWH

PATIENT
  Age: 51 Year
  Sex: Female

DRUGS (1)
  1. AVELOX [Suspect]
     Indication: SINUSITIS
     Dosage: 400 MG, NI; ORAL
     Route: 048

REACTIONS (12)
  - BRAIN ABSCESS [None]
  - CEREBRAL CYST [None]
  - CLOSED HEAD INJURY [None]
  - CONVULSION [None]
  - DRUG HYPERSENSITIVITY [None]
  - FACE OEDEMA [None]
  - HYPOTENSION [None]
  - HYPOXIA [None]
  - LOSS OF CONSCIOUSNESS [None]
  - SEPSIS [None]
  - SINUSITIS [None]
  - SYNCOPE [None]
